FAERS Safety Report 20071473 (Version 1)
Quarter: 2021Q4

REPORT INFORMATION
  Report Type: Spontaneous
  Country: NL (occurrence: None)
  Receive Date: 20211115
  Receipt Date: 20211115
  Transmission Date: 20220303
  Serious: Yes (Hospitalization)
  Sender: FDA-Public Use
  Company Number: 2021A798734

PATIENT
  Age: 53 Year
  Sex: Female
  Weight: 78 kg

DRUGS (7)
  1. OMEPRAZOLE [Suspect]
     Active Substance: OMEPRAZOLE
     Indication: Prophylaxis against gastrointestinal ulcer
     Dosage: 1 X PER DAY 1 PIECE
     Route: 065
     Dates: start: 2010, end: 20210904
  2. NAPROXEN [Suspect]
     Active Substance: NAPROXEN
     Indication: Vasculitis
     Dosage: 1 X PER DAY 1 PIECE
     Route: 065
     Dates: start: 202108, end: 20210904
  3. CALCIUMCARB [Concomitant]
     Dosage: 500 MG
     Route: 065
  4. ASPIRIN [Concomitant]
     Active Substance: ASPIRIN
     Dosage: TABLET, 80 MG (MILLIGRAM)
     Route: 065
  5. MAGNESIUM GLUCONAAT [Concomitant]
     Dosage: TABLET, 500 MG (MILLIGRAM)
     Route: 065
  6. LEVOTHYROXINE [Concomitant]
     Active Substance: LEVOTHYROXINE
     Dosage: TABLET, 100 ??G (MICROGRAM)
     Route: 065
  7. LOSARTAN [Concomitant]
     Active Substance: LOSARTAN
     Dosage: FILMOMHULDE TABLET, 50 MG (MILLIGRAM)
     Route: 065

REACTIONS (1)
  - Delirium [Recovered/Resolved]

NARRATIVE: CASE EVENT DATE: 20210904
